FAERS Safety Report 6103445-7 (Version None)
Quarter: 2009Q1

REPORT INFORMATION
  Report Type: 
  Country: None (occurrence: None)
  Receive Date: 20090305
  Receipt Date: 20090225
  Transmission Date: 20090719
  Serious: Yes (Other)
  Sender: FDA-Public Use
  Company Number: PHBS2009DE00953

PATIENT
  Age: 77 Year
  Sex: Female

DRUGS (3)
  1. ZOLEDRONIC ACID [Suspect]
     Dosage: 36 MONTHS
  2. CHEMOTHERAPEUTICS NOS [Concomitant]
  3. STEROIDS NOS [Concomitant]

REACTIONS (3)
  - ACTINOMYCOSIS [None]
  - BONE DISORDER [None]
  - OSTEONECROSIS [None]
